FAERS Safety Report 5156911-5 (Version None)
Quarter: 2006Q4

REPORT INFORMATION
  Report Type: 
  Country: None (occurrence: None)
  Receive Date: 20060918
  Receipt Date: 20051214
  Transmission Date: 20070319
  Serious: Yes (Other)
  Sender: FDA-Public Use
  Company Number: US-JNJFOC-20051204039

PATIENT
  Sex: Female

DRUGS (2)
  1. TOPAMAX [Suspect]
     Indication: MOOD SWINGS
     Dosage: 300 MG, 2 IN 1 DAY, ORAL
     Route: 048
     Dates: start: 20051001
  2. INSULIN (INSULIN) [Concomitant]

REACTIONS (1)
  - WEIGHT DECREASED [None]
